FAERS Safety Report 18161608 (Version 1)
Quarter: 2020Q3

REPORT INFORMATION
  Report Type: Spontaneous
  Country: US (occurrence: US)
  Receive Date: 20200818
  Receipt Date: 20200818
  Transmission Date: 20201103
  Serious: Yes (Other)
  Sender: FDA-Public Use
  Company Number: NVSC2020US225119

PATIENT
  Age: 17 Year
  Sex: Male

DRUGS (2)
  1. NADOLOL. [Suspect]
     Active Substance: NADOLOL
     Dosage: 60 MG, QD
     Route: 065
  2. NADOLOL. [Suspect]
     Active Substance: NADOLOL
     Indication: VENTRICULAR TACHYCARDIA
     Dosage: 30 MG, BID (0.5 MG/KG/DAY)
     Route: 065

REACTIONS (6)
  - Product use in unapproved indication [Unknown]
  - Condition aggravated [Unknown]
  - Drug ineffective [Unknown]
  - Hypotension [Unknown]
  - Bradycardia [Unknown]
  - Dizziness [Unknown]
